FAERS Safety Report 7198706-7 (Version None)
Quarter: 2010Q4

REPORT INFORMATION
  Report Type: 
  Country: None (occurrence: None)
  Receive Date: 20101227
  Receipt Date: 20101216
  Transmission Date: 20110411
  Serious: Yes (Other)
  Sender: FDA-Public Use
  Company Number: US-JNJFOC-20101207882

PATIENT
  Sex: Male
  Weight: 24.04 kg

DRUGS (1)
  1. CONCERTA [Suspect]
     Indication: ATTENTION DEFICIT/HYPERACTIVITY DISORDER
     Route: 048

REACTIONS (4)
  - ABNORMAL LOSS OF WEIGHT [None]
  - INCONTINENCE [None]
  - INITIAL INSOMNIA [None]
  - MIDDLE INSOMNIA [None]
